FAERS Safety Report 25601828 (Version 3)
Quarter: 2025Q3

REPORT INFORMATION
  Report Type: Spontaneous
  Country: US (occurrence: US)
  Receive Date: 20250724
  Receipt Date: 20250827
  Transmission Date: 20251020
  Serious: No
  Sender: PFIZER
  Company Number: US-PFIZER INC-202500148379

PATIENT
  Age: 70 Year
  Sex: Female
  Weight: 67.59 kg

DRUGS (4)
  1. NORPACE CR [Suspect]
     Active Substance: DISOPYRAMIDE PHOSPHATE
     Indication: Heart disease congenital
     Dosage: 150 MG, 2X/DAY (150MG TABLET TWICE A DAY BY MOUTH)
     Route: 048
     Dates: start: 202503
  2. NORPACE CR [Suspect]
     Active Substance: DISOPYRAMIDE PHOSPHATE
     Indication: Dyspnoea
  3. COPAXONE [Concomitant]
     Active Substance: GLATIRAMER ACETATE
     Indication: Multiple sclerosis
  4. BACLOFEN [Concomitant]
     Active Substance: BACLOFEN
     Indication: Muscle spasms

REACTIONS (4)
  - Amnesia [Unknown]
  - Cognitive disorder [Unknown]
  - Mass [Unknown]
  - Condition aggravated [Unknown]
